FAERS Safety Report 9859138 (Version 9)
Quarter: 2015Q1

REPORT INFORMATION
  Report Type: Spontaneous
  Country: US (occurrence: US)
  Receive Date: 20140131
  Receipt Date: 20150213
  Transmission Date: 20150721
  Serious: Yes (Hospitalization, Other)
  Sender: FDA-Public Use
  Company Number: GB-ACTELION-A-NJ2013-86942

PATIENT
  Age: 48 Year
  Sex: Female

DRUGS (8)
  1. VELETRI [Suspect]
     Active Substance: EPOPROSTENOL
     Indication: PULMONARY ARTERIAL HYPERTENSION
     Dosage: 58 NG/KG, PER MIN
     Route: 042
     Dates: start: 20121019
  2. VELETRI [Suspect]
     Active Substance: EPOPROSTENOL
     Dosage: 14 NG/KG, PER MIN
     Route: 042
     Dates: start: 20140904
  3. VELETRI [Suspect]
     Active Substance: EPOPROSTENOL
     Dosage: 3 NG/KG, PER MIN
     Route: 042
     Dates: start: 20140904
  4. ADCIRCA [Concomitant]
     Active Substance: TADALAFIL
  5. VELETRI [Suspect]
     Active Substance: EPOPROSTENOL
     Dosage: 56 NG/KG, PER MIN
     Route: 042
     Dates: start: 20121024, end: 201312
  6. VELETRI [Suspect]
     Active Substance: EPOPROSTENOL
     Dosage: 60 NG/KG, PER MIN
     Route: 042
  7. VELETRI [Suspect]
     Active Substance: EPOPROSTENOL
     Dosage: UNK
     Route: 042
     Dates: start: 201312
  8. LETAIRIS [Suspect]
     Active Substance: AMBRISENTAN
     Indication: PRODUCT USED FOR UNKNOWN INDICATION
     Dosage: 10 MG, QD
     Route: 048
     Dates: start: 20121123

REACTIONS (14)
  - Toxicity to various agents [Unknown]
  - Nausea [Unknown]
  - Fluid retention [Unknown]
  - Flushing [Unknown]
  - Feeding disorder [Unknown]
  - Drug hypersensitivity [Unknown]
  - Vomiting [Unknown]
  - Oedema [Unknown]
  - Diarrhoea [Unknown]
  - Drug administration error [Unknown]
  - Dyspnoea [Unknown]
  - Dysentery [Unknown]
  - Gastrointestinal ulcer [Unknown]
  - Malaise [Unknown]

NARRATIVE: CASE EVENT DATE: 20131201
